FAERS Safety Report 7408939-X (Version None)
Quarter: 2011Q1

REPORT INFORMATION
  Report Type: 
  Country: None (occurrence: None)
  Receive Date: 20110307
  Receipt Date: 20110307
  Transmission Date: 20110831
  Serious: No
  Sender: FDA-Public Use
  Company Number: None

PATIENT
  Age: 69 Year
  Sex: Female
  Weight: 72.1219 kg

DRUGS (15)
  1. RAMIPRIL [Concomitant]
  2. CO-Q10 [Concomitant]
  3. HYDROCHLOROTHIAZIDE [Concomitant]
  4. MESTINON [Concomitant]
  5. FOLIC ACID [Concomitant]
  6. ASPIRIN [Concomitant]
  7. CALCIUM + D [Concomitant]
  8. LAMICIL [Concomitant]
  9. GAMMAGARD [Suspect]
     Indication: MYASTHENIA GRAVIS
     Dosage: 70 G OVER 2 DAY Q MONTH IV
     Route: 042
     Dates: start: 20110303
  10. METHOTREXATE [Concomitant]
  11. SYNTHROID [Concomitant]
  12. PLAVIX [Concomitant]
  13. DILTIAZEM [Concomitant]
  14. NITROGLYCERIN [Concomitant]
  15. VITAMIN B COMPLEX CAP [Concomitant]

REACTIONS (2)
  - PAIN IN EXTREMITY [None]
  - NO REACTION ON PREVIOUS EXPOSURE TO DRUG [None]
